FAERS Safety Report 7766997-7 (Version None)
Quarter: 2011Q3

REPORT INFORMATION
  Report Type: 
  Country: None (occurrence: None)
  Receive Date: 20110922
  Receipt Date: 20110916
  Transmission Date: 20111222
  Serious: Yes (Other)
  Sender: FDA-Public Use
  Company Number: PHHY2011JP83084

PATIENT

DRUGS (1)
  1. TEGRETOL [Suspect]
     Dosage: UNK UKN, UNK
     Route: 048

REACTIONS (2)
  - EYELID OEDEMA [None]
  - OEDEMA [None]
